FAERS Safety Report 20349326 (Version 1)
Quarter: 2022Q1

REPORT INFORMATION
  Report Type: Spontaneous
  Country: JP (occurrence: JP)
  Receive Date: 20220119
  Receipt Date: 20220119
  Transmission Date: 20220424
  Serious: Yes (Other)
  Sender: FDA-Public Use
  Company Number: JP-LUPIN PHARMACEUTICALS INC.-2022-00463

PATIENT
  Age: 41 Year
  Sex: Male

DRUGS (9)
  1. QUETIAPINE [Suspect]
     Active Substance: QUETIAPINE
     Indication: Catatonia
     Dosage: 600 MILLIGRAM, QD
     Route: 048
  2. QUETIAPINE [Suspect]
     Active Substance: QUETIAPINE
     Dosage: 600 MILLIGRAM, QD, THROUGH A TUBE
     Route: 065
  3. OLANZAPINE [Suspect]
     Active Substance: OLANZAPINE
     Indication: Catatonia
     Dosage: GRADUALLY INCREASED FROM 5 TO 20MG
     Route: 065
  4. DIAZEPAM [Suspect]
     Active Substance: DIAZEPAM
     Indication: Catatonia
     Dosage: 40-60 MG/DAY
     Route: 042
  5. DIAZEPAM [Suspect]
     Active Substance: DIAZEPAM
     Dosage: 60-80MG/DAY
     Route: 065
  6. THIAMYLAL [Concomitant]
     Active Substance: THIAMYLAL
     Indication: Induction of anaesthesia
     Dosage: 125 MG (2MG/KG)
     Route: 065
  7. THIAMYLAL [Concomitant]
     Active Substance: THIAMYLAL
     Dosage: 50 MG (0.8 MG/KG)
     Route: 065
  8. REMIFENTANIL [Concomitant]
     Active Substance: REMIFENTANIL
     Indication: Schizophrenia
     Dosage: 100 MICROGRAM
     Route: 065
  9. FLUMAZENIL [Concomitant]
     Active Substance: FLUMAZENIL
     Indication: Induction of anaesthesia
     Dosage: 0.5 MILLIGRAM
     Route: 065

REACTIONS (2)
  - Drug ineffective for unapproved indication [Unknown]
  - Off label use [Unknown]
